FAERS Safety Report 13434124 (Version 1)
Quarter: 2017Q2

REPORT INFORMATION
  Report Type: Spontaneous
  Country: GB (occurrence: GB)
  Receive Date: 20170412
  Receipt Date: 20170412
  Transmission Date: 20170830
  Serious: Yes (Hospitalization)
  Sender: FDA-Public Use
  Company Number: GB-NOVOPROD-540066

PATIENT
  Age: 71 Year
  Sex: Female

DRUGS (1)
  1. VICTOZA [Suspect]
     Active Substance: LIRAGLUTIDE
     Indication: APPETITE DISORDER
     Dosage: UNKNOWN
     Route: 065

REACTIONS (2)
  - Lung disorder [Recovered/Resolved]
  - Product use in unapproved indication [Unknown]
